FAERS Safety Report 19555482 (Version 4)
Quarter: 2021Q3

REPORT INFORMATION
  Report Type: Spontaneous
  Country: JP (occurrence: JP)
  Receive Date: 20210715
  Receipt Date: 20210805
  Transmission Date: 20211014
  Serious: Yes (Other)
  Sender: FDA-Public Use
  Company Number: JP-ASTRAZENECA-2021A607978

PATIENT
  Age: 44 Year
  Sex: Male

DRUGS (12)
  1. DESALEX [Suspect]
     Active Substance: DESLORATADINE
     Indication: SEASONAL ALLERGY
     Route: 048
     Dates: start: 20180207, end: 20180307
  2. LANSOPRAZOLE OD [Suspect]
     Active Substance: LANSOPRAZOLE
     Indication: GASTROOESOPHAGEAL REFLUX DISEASE
     Route: 048
     Dates: start: 20180523, end: 20180530
  3. XYZAL [Suspect]
     Active Substance: LEVOCETIRIZINE DIHYDROCHLORIDE
     Indication: SEASONAL ALLERGY
     Route: 048
     Dates: start: 20171023, end: 20171113
  4. CELESTAMINE [Suspect]
     Active Substance: BETAMETHASONE\DEXCHLORPHENIRAMINE MALEATE
     Indication: SEASONAL ALLERGY
     Route: 048
     Dates: start: 20180207, end: 20180214
  5. PATANOL [Suspect]
     Active Substance: OLOPATADINE HYDROCHLORIDE
     Indication: SEASONAL ALLERGY
     Dosage: DOSE UNKNOWN, SEVERAL TIMES/DAY
     Route: 047
     Dates: start: 20180320, end: 20180327
  6. SACCORTIN [Suspect]
     Active Substance: BETAMETHASONE\DEXCHLORPHENIRAMINE MALEATE
     Indication: SEASONAL ALLERGY
     Route: 048
     Dates: start: 20180320, end: 20180327
  7. DESALEX [Suspect]
     Active Substance: DESLORATADINE
     Indication: ALOPECIA AREATA
     Dosage: DOSE UNKNOWN
     Route: 048
     Dates: start: 201705
  8. DESALEX [Suspect]
     Active Substance: DESLORATADINE
     Indication: ALOPECIA AREATA
     Route: 048
     Dates: start: 20180207, end: 20180307
  9. DESALEX [Suspect]
     Active Substance: DESLORATADINE
     Indication: SEASONAL ALLERGY
     Route: 048
     Dates: start: 20180328, end: 20180430
  10. DESALEX [Suspect]
     Active Substance: DESLORATADINE
     Indication: ALOPECIA AREATA
     Route: 048
     Dates: start: 20180328, end: 20180430
  11. NEXIUM [Suspect]
     Active Substance: ESOMEPRAZOLE MAGNESIUM
     Indication: GASTROOESOPHAGEAL REFLUX DISEASE
     Route: 048
     Dates: start: 20170715, end: 20170829
  12. DESALEX [Suspect]
     Active Substance: DESLORATADINE
     Indication: SEASONAL ALLERGY
     Dosage: DOSE UNKNOWN
     Route: 048
     Dates: start: 201705

REACTIONS (2)
  - Alopecia areata [Not Recovered/Not Resolved]
  - Seasonal allergy [Recovered/Resolved]

NARRATIVE: CASE EVENT DATE: 201707
